FAERS Safety Report 12380406 (Version 4)
Quarter: 2016Q3

REPORT INFORMATION
  Report Type: Spontaneous
  Country: US (occurrence: US)
  Receive Date: 20160518
  Receipt Date: 20160707
  Transmission Date: 20161109
  Serious: No
  Sender: FDA-Public Use
  Company Number: US-PFIZER INC-2016136826

PATIENT
  Age: 68 Year
  Weight: 78 kg

DRUGS (11)
  1. SUTENT [Suspect]
     Active Substance: SUNITINIB MALATE
     Indication: RENAL CANCER STAGE IV
     Dosage: 50 MG, CYCLIC, 2 WEEKS ON/1 WEEK OFF
     Dates: start: 20160427
  2. SUTENT [Suspect]
     Active Substance: SUNITINIB MALATE
     Indication: METASTASES TO CENTRAL NERVOUS SYSTEM
  3. SUTENT [Suspect]
     Active Substance: SUNITINIB MALATE
     Indication: RENAL CANCER
  4. VALSARTAN. [Concomitant]
     Active Substance: VALSARTAN
     Dosage: UNK
  5. SIMVASTATIN. [Concomitant]
     Active Substance: SIMVASTATIN
     Dosage: UNK
  6. ZOFRAN [Concomitant]
     Active Substance: ONDANSETRON HYDROCHLORIDE
     Dosage: UNK
  7. PHENERGAN [Concomitant]
     Active Substance: PROMETHAZINE HYDROCHLORIDE
     Dosage: UNK
  8. METOPROLOL. [Concomitant]
     Active Substance: METOPROLOL
     Dosage: UNK
  9. SUTENT [Suspect]
     Active Substance: SUNITINIB MALATE
     Indication: METASTASES TO BONE
     Dosage: 37.5 MG, CYCLIC (14 DAYS ON AND 7 DAYS OFF)
     Route: 048
  10. AMLODIPINE [Concomitant]
     Active Substance: AMLODIPINE BESYLATE
     Dosage: UNK
  11. PROMETHAZINE [Concomitant]
     Active Substance: PROMETHAZINE\PROMETHAZINE HYDROCHLORIDE
     Dosage: UNK

REACTIONS (9)
  - Diarrhoea [Unknown]
  - Nausea [Not Recovered/Not Resolved]
  - Lymphadenopathy [Unknown]
  - Swelling face [Unknown]
  - Weight decreased [Unknown]
  - Renal cancer stage IV [Unknown]
  - Oral pain [Unknown]
  - Disease progression [Unknown]
  - Arthralgia [Recovered/Resolved]

NARRATIVE: CASE EVENT DATE: 2016
